FAERS Safety Report 9750842 (Version 1)
Quarter: 2013Q4

REPORT INFORMATION
  Report Type: Spontaneous
  Country: BR (occurrence: BR)
  Receive Date: 20131212
  Receipt Date: 20131212
  Transmission Date: 20140711
  Serious: Yes (Death, Hospitalization, Other)
  Sender: FDA-Public Use
  Company Number: BR-PFIZER INC-2013353754

PATIENT
  Sex: Male

DRUGS (1)
  1. METHYLPREDNISOLONE [Suspect]
     Dosage: UNK

REACTIONS (4)
  - Sepsis [Fatal]
  - Drug dependence [Unknown]
  - Dermatitis exfoliative [Unknown]
  - Drug hypersensitivity [Unknown]
